FAERS Safety Report 7793770-6 (Version None)
Quarter: 2011Q4

REPORT INFORMATION
  Report Type: 
  Country: None (occurrence: None)
  Receive Date: 20111003
  Receipt Date: 20110920
  Transmission Date: 20120403
  Serious: Yes (Other)
  Sender: FDA-Public Use
  Company Number: GB-MYLANLABS-2011S1020322

PATIENT
  Age: 66 Year
  Sex: Female

DRUGS (6)
  1. MELPHALAN HYDROCHLORIDE [Suspect]
     Indication: MALIGNANT MELANOMA STAGE III
     Dosage: 7MG/L
     Route: 042
  2. ASPIRIN [Concomitant]
  3. DACTINOMYCIN [Suspect]
     Indication: MALIGNANT MELANOMA STAGE III
     Route: 042
  4. DALTEPARIN SODIUM [Concomitant]
  5. HEPARIN [Concomitant]
  6. PROTAMINE [Concomitant]

REACTIONS (1)
  - CELLULITIS [None]
